FAERS Safety Report 7901615-6 (Version None)
Quarter: 2011Q4

REPORT INFORMATION
  Report Type: 
  Country: None (occurrence: None)
  Receive Date: 20111104
  Receipt Date: 20111021
  Transmission Date: 20120403
  Serious: Yes (Death)
  Sender: FDA-Public Use
  Company Number: TUK2011A00094

PATIENT
  Age: 66 Year
  Sex: Male

DRUGS (30)
  1. ROSIGLITAZONE [Suspect]
     Indication: PRODUCT USED FOR UNKNOWN INDICATION
     Dates: start: 20040701
  2. ASILONE (SIMETICONE) [Concomitant]
  3. HYDROCORTONE [Concomitant]
  4. OMEPRAZOLE [Concomitant]
  5. ENSURE PLUS (VITAMINS NOS, MINERALS NOS, ELECTROLYTES NOS, CARBOHYDRAT [Concomitant]
  6. DALTEPARIN SODIUM [Concomitant]
  7. METFORMIN HCL [Concomitant]
  8. PANTOPRAZOLE [Concomitant]
  9. TRAMADOL HYDROCHLORIDE [Concomitant]
  10. ACTOS [Suspect]
     Indication: PRODUCT USED FOR UNKNOWN INDICATION
     Dosage: 30 MG ORAL
     Dates: start: 20100922
  11. FENOFIBRATE [Concomitant]
  12. FLUTICASONE PROPIONATE [Concomitant]
  13. LACTULOSE [Concomitant]
  14. SODIUM CROMOGLICATE (CROMOGLICATE SODIUM) [Concomitant]
  15. TINZAPARIN (TINZAPARIN) [Concomitant]
  16. BISACODYL (BISACODYL) [Concomitant]
  17. CANDESARTAN CILEXETIL [Concomitant]
  18. FYBOGEL (PLANTAGO OVATA) [Concomitant]
  19. GLICLAZIDE (GLICLAZIDE) [Concomitant]
  20. HYOSCINE HBR HYT [Concomitant]
  21. MACROGOL (MACROGOL) [Concomitant]
  22. ONDANSETRON [Concomitant]
  23. ACETAMINOPHEN [Concomitant]
  24. TADALAFIL [Concomitant]
  25. ASPIRIN [Concomitant]
  26. CLONAZEPAM [Concomitant]
  27. MOMETASONE FUROATE [Concomitant]
  28. ROPIVACAINE HYDROCHLORIDE [Concomitant]
  29. SENNA-MINT WAF [Concomitant]
  30. WARFARIN SODIUM [Concomitant]

REACTIONS (7)
  - FATIGUE [None]
  - NEOPLASM PROGRESSION [None]
  - METASTASES TO PERITONEUM [None]
  - DEEP VEIN THROMBOSIS [None]
  - METASTASES TO LIVER [None]
  - BLADDER CANCER [None]
  - METASTASES TO LUNG [None]
